FAERS Safety Report 9400366 (Version 1)
Quarter: 2013Q3

REPORT INFORMATION
  Report Type: Spontaneous
  Country: US (occurrence: None)
  Receive Date: 20130712
  Receipt Date: 20130712
  Transmission Date: 20140515
  Serious: Yes (Other)
  Sender: FDA-Public Use
  Company Number: None

PATIENT
  Age: 63 None
  Sex: Female

DRUGS (21)
  1. SINEMET [Suspect]
     Indication: PARKINSON^S DISEASE
     Route: 048
     Dates: start: 2008, end: 20130508
  2. FOSAMAX [Concomitant]
  3. PREMARIN [Concomitant]
  4. CHLORTNADLIDONE [Concomitant]
  5. DITROPAN [Concomitant]
  6. SEROQUEL [Concomitant]
  7. ESTRP GE; [Concomitant]
  8. PROBIOTIC [Concomitant]
  9. NEXIUM [Concomitant]
  10. MAGNESIUM [Concomitant]
  11. FISH OIL [Concomitant]
  12. BUPROPION [Concomitant]
  13. VITAMIN D3 [Concomitant]
  14. LINZESS [Concomitant]
  15. AMITIZA [Concomitant]
  16. LISINOPRIL [Concomitant]
  17. LIPITOR [Concomitant]
  18. VALTREX [Concomitant]
  19. NEUPRO [Concomitant]
  20. PLAVIX [Concomitant]
  21. VITAMIN C [Concomitant]

REACTIONS (2)
  - Drug ineffective [None]
  - Vomiting [None]
